FAERS Safety Report 16255312 (Version 4)
Quarter: 2020Q1

REPORT INFORMATION
  Report Type: Spontaneous
  Country: DE (occurrence: DE)
  Receive Date: 20190430
  Receipt Date: 20200219
  Transmission Date: 20200409
  Serious: Yes (Other)
  Sender: FDA-Public Use
  Company Number: DE-MYLANLABS-2019M1037761

PATIENT
  Age: 81 Year
  Sex: Male

DRUGS (35)
  1. SIMVASTATIN. [Suspect]
     Active Substance: SIMVASTATIN
     Indication: PRODUCT USED FOR UNKNOWN INDICATION
     Dosage: 40 MG, QD (IN THE EVENING)
     Route: 065
     Dates: start: 2014
  2. VALSARTAN. [Suspect]
     Active Substance: VALSARTAN
     Indication: PRODUCT USED FOR UNKNOWN INDICATION
     Dosage: 160 MILLIGRAM, QD(MORGENS)
     Route: 065
     Dates: start: 2014
  3. VALSARTAN. [Suspect]
     Active Substance: VALSARTAN
     Dosage: 160 MILLIGRAM, QD
     Route: 065
     Dates: start: 2014
  4. ALLOPURINOL. [Suspect]
     Active Substance: ALLOPURINOL
     Dosage: 100 MILLIGRAM, QD (IN THE MORNING)
     Route: 065
     Dates: start: 2018
  5. LANTUS [Suspect]
     Active Substance: INSULIN GLARGINE
     Indication: PRODUCT USED FOR UNKNOWN INDICATION
     Dosage: 20 IU, QD
     Route: 065
     Dates: start: 2014
  6. TORASEMID [Suspect]
     Active Substance: TORSEMIDE
     Dosage: 20 MILLIGRAM
     Route: 065
     Dates: start: 2014
  7. NOVORAPID [Suspect]
     Active Substance: INSULIN ASPART
     Dosage: IN THE MORNING: 24, NOON: 18, IN THE EVENING: 20
     Route: 065
     Dates: start: 2018
  8. VALSARTAN. [Suspect]
     Active Substance: VALSARTAN
     Dosage: 160 MILLIGRAM, QD
     Route: 065
     Dates: start: 2014
  9. TAMSULOSIN [Suspect]
     Active Substance: TAMSULOSIN
     Indication: PRODUCT USED FOR UNKNOWN INDICATION
     Dosage: 0.4 MG, QD
     Route: 065
     Dates: start: 2014
  10. NOVAMINSULFON [Suspect]
     Active Substance: METAMIZOLE
     Indication: PRODUCT USED FOR UNKNOWN INDICATION
     Dosage: BEI BEDARF 2-3X T?GLICH 20-30 TROPFEN
     Route: 065
     Dates: start: 2014
  11. NOVORAPID [Suspect]
     Active Substance: INSULIN ASPART
     Indication: PRODUCT USED FOR UNKNOWN INDICATION
     Dosage: IN THE MORNING, AT NOON AND IN THE EVENING BETWEEN 8 AND 40 IU BEFORE THE MEAL
     Route: 065
     Dates: start: 2012
  12. CANDESARTAN. [Suspect]
     Active Substance: CANDESARTAN
     Indication: PRODUCT USED FOR UNKNOWN INDICATION
     Dosage: 16 MILLIGRAM, QD (MORGENS)
     Route: 065
     Dates: start: 20181009
  13. AMLODIPINE [Suspect]
     Active Substance: AMLODIPINE BESYLATE
     Dosage: 5 MG, QD (IN THE EVENING)
     Route: 065
     Dates: start: 2018
  14. VALSARTAN HEXAL [Suspect]
     Active Substance: VALSARTAN
     Indication: PRODUCT USED FOR UNKNOWN INDICATION
     Dosage: 160 MILLIGRAM, QD
     Route: 065
     Dates: start: 2014
  15. TORASEMID [Suspect]
     Active Substance: TORSEMIDE
     Dosage: 40 MILLIGRAM, QD(20 IN THE MORNING, 20 IN THE EVENING)
     Route: 065
     Dates: start: 2014
  16. CALCITRIOL. [Concomitant]
     Active Substance: CALCITRIOL
     Indication: PRODUCT USED FOR UNKNOWN INDICATION
     Dosage: 0.25 MG, QD
     Route: 065
     Dates: start: 2014
  17. CANDESARTAN ZENTIVA [Concomitant]
     Active Substance: CANDESARTAN CILEXETIL
     Indication: PRODUCT USED FOR UNKNOWN INDICATION
     Dosage: UNK
     Route: 065
  18. PANTOPRAZOLE [Suspect]
     Active Substance: PANTOPRAZOLE
     Dosage: 40 MG, QD
     Route: 065
  19. AMLODIPINE [Suspect]
     Active Substance: AMLODIPINE BESYLATE
     Indication: PRODUCT USED FOR UNKNOWN INDICATION
     Dosage: 5 MILLIGRAM, QD
     Route: 065
     Dates: start: 2014
  20. ACETYLSALICYLIC ACID [Suspect]
     Active Substance: ASPIRIN
     Indication: PRODUCT USED FOR UNKNOWN INDICATION
     Dosage: 100 MG, QD
     Route: 065
     Dates: start: 2014
  21. NOVAMINSULFON [Suspect]
     Active Substance: METAMIZOLE
     Dosage: UNK
     Route: 065
     Dates: start: 2014
  22. TORASEMID [Suspect]
     Active Substance: TORSEMIDE
     Indication: PRODUCT USED FOR UNKNOWN INDICATION
     Dosage: 20 MG, QD
     Route: 065
     Dates: start: 2012
  23. TORASEMID [Suspect]
     Active Substance: TORSEMIDE
     Dosage: 20 MILLIGRAM
     Route: 065
  24. NOVORAPID [Suspect]
     Active Substance: INSULIN ASPART
     Dosage: IN THE MORNING: 24, NOON: 18, IN THE EVENING: 20
     Route: 065
     Dates: start: 2014
  25. ENALAPRIL [Concomitant]
     Active Substance: ENALAPRIL
     Indication: PRODUCT USED FOR UNKNOWN INDICATION
     Dosage: UNK
     Route: 065
  26. PANTOPRAZOLE [Suspect]
     Active Substance: PANTOPRAZOLE
     Dosage: 40 MILLIGRAM, PRN (NACH BEDARF MORGENS)
  27. ALLOPURINOL. [Suspect]
     Active Substance: ALLOPURINOL
     Indication: HYPERURICAEMIA
     Dosage: 300 MG, QD (IN THE MORNING)
     Route: 065
     Dates: start: 2014
  28. LANTUS [Suspect]
     Active Substance: INSULIN GLARGINE
     Dosage: 24 IU, QD (NIGHT)
     Route: 065
     Dates: start: 2018
  29. TORASEMID [Suspect]
     Active Substance: TORSEMIDE
     Dosage: 20 MILLIGRAM
     Route: 065
     Dates: start: 2014
  30. PANTOPRAZOLE [Suspect]
     Active Substance: PANTOPRAZOLE
     Indication: PROPHYLAXIS AGAINST GASTROINTESTINAL ULCER
     Dosage: 40 MILLIGRAM, QD(EINNAHME NACH BEDARF)
     Route: 065
     Dates: start: 2018
  31. AMLODIPINE [Suspect]
     Active Substance: AMLODIPINE BESYLATE
     Dosage: 5 MILLIGRAM, BID 12 HOUR)
     Route: 065
     Dates: start: 2014
  32. AMLODIPINE [Suspect]
     Active Substance: AMLODIPINE BESYLATE
     Dosage: 5 MG, Q12H
     Route: 065
  33. NOVORAPID [Suspect]
     Active Substance: INSULIN ASPART
     Dosage: 24 IN THE MORNING, 18 AT NOON AND 20 IN THE EVENING
     Route: 065
  34. NOVORAPID [Suspect]
     Active Substance: INSULIN ASPART
     Dosage: DOSE BETWEEN 8 AND 40 IU PER TIME BEFORE EATING THRICE DAILY; UNKNOWN
     Route: 065
  35. VALSARTAN. [Suspect]
     Active Substance: VALSARTAN
     Indication: PRODUCT USED FOR UNKNOWN INDICATION
     Dosage: UNK
     Route: 065
     Dates: start: 20180903, end: 20181009

REACTIONS (15)
  - Muscle spasms [Unknown]
  - Asthenia [Unknown]
  - Skin haemorrhage [Recovered/Resolved]
  - Spinal pain [Unknown]
  - Peripheral swelling [Unknown]
  - Nausea [Unknown]
  - Morning sickness [Unknown]
  - Dyspnoea exertional [Unknown]
  - Rectal tenesmus [Unknown]
  - Injection site swelling [Unknown]
  - Blood glucose increased [Unknown]
  - Chest discomfort [Unknown]
  - Myalgia [Unknown]
  - Dyspnoea [Unknown]
  - Pelvic pain [Unknown]

NARRATIVE: CASE EVENT DATE: 201809
